FAERS Safety Report 4770801-9 (Version None)
Quarter: 2005Q3

REPORT INFORMATION
  Report Type: 
  Country: None (occurrence: None)
  Receive Date: 20050914
  Receipt Date: 20050914
  Transmission Date: 20060218
  Serious: Yes (Hospitalization)
  Sender: FDA-Public Use
  Company Number: None

PATIENT
  Age: 84 Year
  Sex: Female

DRUGS (10)
  1. FUROSEMIDE [Suspect]
     Indication: CARDIAC FAILURE CONGESTIVE
     Dosage: 40 MG   BID   PO
     Route: 048
  2. BUMETANIDE [Suspect]
     Indication: CARDIAC FAILURE CONGESTIVE
     Dosage: 1 MG   BID   PO
     Route: 048
     Dates: start: 20050610, end: 20050620
  3. SPIRONOLACTONE [Concomitant]
  4. METOPROLOL [Concomitant]
  5. FERROUS SULFATE [Concomitant]
  6. DOCUSATE SODIUM [Concomitant]
  7. ASPIRIN [Concomitant]
  8. INSULIN [Concomitant]
  9. MULTI-VITAMIN [Concomitant]
  10. ACETAMINOPHEN [Concomitant]

REACTIONS (1)
  - PEMPHIGOID [None]
